FAERS Safety Report 9690914 (Version 2)
Quarter: 2014Q1

REPORT INFORMATION
  Report Type: Spontaneous
  Country: IT (occurrence: IT)
  Receive Date: 20131115
  Receipt Date: 20140102
  Transmission Date: 20141002
  Serious: Yes (Other)
  Sender: FDA-Public Use
  Company Number: IT-UCBSA-103038

PATIENT
  Age: 55 Year
  Sex: Female

DRUGS (6)
  1. KEPPRA [Suspect]
     Indication: EPILEPSY
     Dosage: STRENGTH: 1000 MG
     Route: 048
     Dates: start: 20131023, end: 20131027
  2. CEFAZOLIN [Concomitant]
  3. DEXAMETHASONE [Concomitant]
  4. PROPOFOL [Concomitant]
  5. NEXIUM [Concomitant]
  6. LASIX [Concomitant]

REACTIONS (1)
  - Rhabdomyolysis [Recovering/Resolving]
